FAERS Safety Report 4527159-X (Version None)
Quarter: 2004Q4

REPORT INFORMATION
  Report Type: 
  Country: None (occurrence: None)
  Receive Date: 20041126
  Receipt Date: 20040826
  Transmission Date: 20050328
  Serious: Yes (Death)
  Sender: FDA-Public Use
  Company Number: 2004230907MY

PATIENT

DRUGS (1)
  1. ZYVOX [Suspect]
     Dosage: IV
     Route: 042
     Dates: start: 20040101, end: 20040101

REACTIONS (1)
  - DEATH [None]
